FAERS Safety Report 9403655 (Version 1)
Quarter: 2013Q3

REPORT INFORMATION
  Report Type: Report from Study
  Country: AR (occurrence: AR)
  Receive Date: 20130717
  Receipt Date: 20130717
  Transmission Date: 20140515
  Serious: Yes (Other)
  Sender: FDA-Public Use
  Company Number: AR-ROCHE-1249158

PATIENT
  Sex: Male

DRUGS (2)
  1. RANIBIZUMAB [Suspect]
     Indication: BLINDNESS
     Route: 050
     Dates: end: 2012
  2. SINTROM [Concomitant]

REACTIONS (2)
  - Blood glucose increased [Recovering/Resolving]
  - Cataract [Unknown]
